FAERS Safety Report 6400770-7 (Version None)
Quarter: 2009Q4

REPORT INFORMATION
  Report Type: 
  Country: None (occurrence: None)
  Receive Date: 20091008
  Receipt Date: 20090927
  Transmission Date: 20100525
  Serious: Yes (Other)
  Sender: FDA-Public Use
  Company Number: 2009AP004037

PATIENT
  Age: 41 Year
  Sex: Male

DRUGS (2)
  1. LAMOTRIGINE [Suspect]
     Indication: MOOD ALTERED
     Dosage: 200 MG; TAB; PO; QD
     Route: 048
  2. DIAZEPAM [Concomitant]

REACTIONS (1)
  - PRIAPISM [None]
